FAERS Safety Report 25259129 (Version 1)
Quarter: 2025Q2

REPORT INFORMATION
  Report Type: Spontaneous
  Country: US (occurrence: None)
  Receive Date: 20250430
  Receipt Date: 20250430
  Transmission Date: 20250716
  Serious: Yes (Death)
  Sender: FDA-CTU
  Company Number: None

PATIENT
  Age: 74 Year
  Sex: Male

DRUGS (4)
  1. PIRFENIDONE [Suspect]
     Active Substance: PIRFENIDONE
     Indication: Pulmonary fibrosis
     Dosage: FREQUENCY : DAILY;?
     Route: 048
     Dates: start: 20230803, end: 20250115
  2. ASPIRIN [Concomitant]
     Active Substance: ASPIRIN
  3. ALBUTEROL SULFATE [Concomitant]
     Active Substance: ALBUTEROL SULFATE
  4. OXYGEN INTRANASAL [Concomitant]

REACTIONS (6)
  - Aortic aneurysm [None]
  - Arrhythmia [None]
  - Acute coronary syndrome [None]
  - Pulmonary embolism [None]
  - Haemorrhage intracranial [None]
  - Sudden death [None]

NARRATIVE: CASE EVENT DATE: 20250115
